FAERS Safety Report 4543750-9 (Version None)
Quarter: 2005Q1

REPORT INFORMATION
  Report Type: 
  Country: None (occurrence: None)
  Receive Date: 20050103
  Receipt Date: 20041223
  Transmission Date: 20050727
  Serious: Yes (Other)
  Sender: FDA-Public Use
  Company Number: US-ABBOTT-04P-163-0284529-00

PATIENT
  Sex: Female
  Weight: 83.99 kg

DRUGS (2)
  1. DILAUDID [Suspect]
     Indication: PAIN
     Route: 042
     Dates: start: 20040807, end: 20040807
  2. HYDROCHLOROTHIAZIDE [Concomitant]
     Indication: HYPERTENSION
     Route: 048
     Dates: start: 19840101

REACTIONS (2)
  - ARRHYTHMIA [None]
  - DEPRESSED LEVEL OF CONSCIOUSNESS [None]
